FAERS Safety Report 4359276-1 (Version None)
Quarter: 2004Q2

REPORT INFORMATION
  Report Type: 
  Country: None (occurrence: None)
  Receive Date: 20040512
  Receipt Date: 20040423
  Transmission Date: 20050107
  Serious: Yes (Hospitalization)
  Sender: FDA-Public Use
  Company Number: DSA_24302_2004

PATIENT
  Age: 89 Year
  Sex: Male

DRUGS (6)
  1. LORAZEPAM [Suspect]
     Dosage: 1 MG QD PO
     Route: 048
     Dates: start: 20000710, end: 20000714
  2. SEROQUEL [Suspect]
     Dosage: 25 MG QD PO
     Route: 048
     Dates: start: 20000714, end: 20000714
  3. SEROQUEL [Suspect]
     Dosage: 50 MG QD PO
     Route: 048
     Dates: start: 20000713, end: 20000713
  4. LASIX [Suspect]
     Dosage: 20 MG QD PO
     Route: 048
  5. CAPTOPRIL [Suspect]
     Dosage: 25 MG QD PO
     Route: 048
  6. ASPIRIN [Concomitant]

REACTIONS (7)
  - ARRHYTHMIA [None]
  - BLOOD PRESSURE DIASTOLIC DECREASED [None]
  - BUNDLE BRANCH BLOCK RIGHT [None]
  - HEART RATE INCREASED [None]
  - ORTHOSTATIC HYPOTENSION [None]
  - SOMNOLENCE [None]
  - SYNCOPE [None]
